FAERS Safety Report 9846638 (Version 1)
Quarter: 2014Q1

REPORT INFORMATION
  Report Type: Report from Study
  Country: UG (occurrence: UG)
  Receive Date: 20140127
  Receipt Date: 20140127
  Transmission Date: 20141002
  Serious: Yes (Life-Threatening, Hospitalization, Disabling)
  Sender: FDA-Public Use
  Company Number: UG-VIIV HEALTHCARE LIMITED-B0962911A

PATIENT
  Age: 30 Year
  Sex: Female

DRUGS (5)
  1. COMBIVIR [Suspect]
     Indication: HIV INFECTION
     Dates: start: 20130703, end: 20140105
  2. EFAVIRENZ [Suspect]
     Indication: HIV INFECTION
     Dates: start: 20130703, end: 20140105
  3. COTRIMOXAZOLE [Suspect]
     Indication: HIV INFECTION
     Dates: start: 20130625, end: 20140105
  4. ISONIAZID [Concomitant]
     Dates: start: 20130703, end: 20140105
  5. VITAMIN B6 [Concomitant]
     Dates: start: 20130703, end: 20140105

REACTIONS (4)
  - Cardiac failure congestive [Not Recovered/Not Resolved]
  - Anaemia [Not Recovered/Not Resolved]
  - Urinary tract infection [Not Recovered/Not Resolved]
  - Pancytopenia [Not Recovered/Not Resolved]
